FAERS Safety Report 9742737 (Version 1)
Quarter: 2013Q4

REPORT INFORMATION
  Report Type: Spontaneous
  Country: US (occurrence: US)
  Receive Date: 20131210
  Receipt Date: 20131210
  Transmission Date: 20140711
  Serious: No
  Sender: FDA-Public Use
  Company Number: US-GILEAD-2009-0025898

PATIENT
  Age: 66 Year
  Sex: Male

DRUGS (10)
  1. LETAIRIS [Suspect]
     Indication: PULMONARY ARTERIAL HYPERTENSION
     Route: 048
     Dates: start: 20090919, end: 20091207
  2. REVATIO [Concomitant]
  3. COUMADIN [Concomitant]
  4. EXFORGE [Concomitant]
  5. LASIX [Concomitant]
  6. ATACAND [Concomitant]
  7. LIPITOR [Concomitant]
  8. POTASSIUM [Concomitant]
  9. GLIPIZIDE [Concomitant]
  10. NAPROXEN [Concomitant]

REACTIONS (1)
  - Oedema [Recovering/Resolving]
